FAERS Safety Report 14626751 (Version 2)
Quarter: 2020Q2

REPORT INFORMATION
  Report Type: Spontaneous
  Country: HU (occurrence: HU)
  Receive Date: 20180312
  Receipt Date: 20200406
  Transmission Date: 20200713
  Serious: Yes (Death)
  Sender: FDA-Public Use
  Company Number: HU-ABBVIE-18P-076-2284597-00

PATIENT
  Age: 51 Year
  Sex: Female

DRUGS (1)
  1. VENCLYXTO [Suspect]
     Active Substance: VENETOCLAX
     Indication: PLASMABLASTIC LYMPHOMA
     Route: 048
     Dates: start: 201707, end: 201801

REACTIONS (2)
  - Richter^s syndrome [Fatal]
  - Off label use [Unknown]

NARRATIVE: CASE EVENT DATE: 201707
